FAERS Safety Report 7051168-2 (Version None)
Quarter: 2010Q4

REPORT INFORMATION
  Report Type: 
  Country: None (occurrence: None)
  Receive Date: 20101019
  Receipt Date: 20101004
  Transmission Date: 20110411
  Serious: Yes (Hospitalization, Other)
  Sender: FDA-Public Use
  Company Number: PHHY2010US66025

PATIENT
  Sex: Male
  Weight: 53 kg

DRUGS (10)
  1. EXJADE [Suspect]
     Indication: IRON OVERLOAD
     Dosage: 750 MG, QD
     Dates: start: 20080601
  2. EXJADE [Suspect]
     Indication: SICKLE CELL ANAEMIA
  3. HYDROXYUREA [Concomitant]
     Indication: SICKLE CELL ANAEMIA
     Dosage: 1200 MG, QD, INCREASING DOSE UP TO 1200 MG
     Dates: start: 20090301, end: 20100701
  4. AMOXIL [Concomitant]
     Indication: PROPHYLAXIS
     Dosage: 250 MG, BID
     Dates: start: 19950101
  5. FOLIC ACID [Concomitant]
     Indication: SUPPLEMENTATION THERAPY
     Dosage: 1 MG, QD
     Route: 048
     Dates: start: 19960101
  6. ZYRTEC [Concomitant]
     Indication: HYPERSENSITIVITY
     Dosage: 10 MG, QD
     Route: 048
     Dates: start: 20060101
  7. PRILOSEC [Concomitant]
     Indication: REFLUX GASTRITIS
     Dosage: 20 MG, QD
     Route: 048
     Dates: start: 20090101
  8. ASPIRIN [Concomitant]
     Dosage: 750 MG, QD
     Dates: start: 20080601, end: 20100701
  9. ASPIRIN [Concomitant]
     Dosage: 500 MG, QD
     Dates: start: 20100701
  10. TRANSFUSIONS [Concomitant]
     Dosage: UNK
     Dates: start: 20060501

REACTIONS (4)
  - ANGIOPATHY [None]
  - HEPATOTOXICITY [None]
  - LIVER FUNCTION TEST ABNORMAL [None]
  - TRANSAMINASES INCREASED [None]
